FAERS Safety Report 6446465-5 (Version None)
Quarter: 2009Q4

REPORT INFORMATION
  Report Type: 
  Country: None (occurrence: None)
  Receive Date: 20091119
  Receipt Date: 20091111
  Transmission Date: 20100525
  Serious: Yes (Hospitalization)
  Sender: FDA-Public Use
  Company Number: PHHO2009CH05094

PATIENT
  Sex: Male

DRUGS (2)
  1. ERL 080A ERL+TAB [Suspect]
     Indication: LUNG TRANSPLANT
     Dosage: 2160 DAILY
     Route: 048
     Dates: start: 20071212, end: 20080114
  2. RAD 666 RAD+TAB+PTR [Suspect]
     Indication: LUNG TRANSPLANT
     Dosage: 1MG DAILY
     Route: 048
     Dates: start: 20080115

REACTIONS (2)
  - LOWER RESPIRATORY TRACT INFECTION [None]
  - PLEURAL EFFUSION [None]
